FAERS Safety Report 4543608-5 (Version None)
Quarter: 2005Q1

REPORT INFORMATION
  Report Type: 
  Country: None (occurrence: None)
  Receive Date: 20050103
  Receipt Date: 20041216
  Transmission Date: 20050727
  Serious: Yes (Hospitalization)
  Sender: FDA-Public Use
  Company Number: JP-GLAXOSMITHKLINE-B0362044A

PATIENT
  Sex: Female

DRUGS (1)
  1. FLUTICASONE PROPIONATE [Suspect]
     Indication: PROPHYLAXIS
     Route: 055

REACTIONS (2)
  - ADRENAL INSUFFICIENCY [None]
  - HYPOGLYCAEMIA [None]
